FAERS Safety Report 6710017-X (Version None)
Quarter: 2010Q2

REPORT INFORMATION
  Report Type: 
  Country: None (occurrence: None)
  Receive Date: 20100504
  Receipt Date: 20100421
  Transmission Date: 20101027
  Serious: Yes (Hospitalization, Other)
  Sender: FDA-Public Use
  Company Number: ZA-PFIZER INC-2010050777

PATIENT
  Age: 62 Year
  Sex: Female
  Weight: 77 kg

DRUGS (6)
  1. LYRICA [Suspect]
     Dosage: 75 MG, 2X/DAY
     Route: 048
     Dates: start: 20090901
  2. LYRICA [Suspect]
     Dosage: 100 MG, 2X/DAY
     Route: 048
  3. LYRICA [Suspect]
     Dosage: 300 MG, 2X/DAY
     Route: 048
     Dates: end: 20091001
  4. ZIAK [Concomitant]
     Dosage: UNK
     Route: 048
  5. FORTFEN [Concomitant]
     Dosage: UNK
     Route: 048
  6. PURICOS [Concomitant]
     Dosage: UNK
     Route: 048

REACTIONS (2)
  - RENAL DISORDER [None]
  - RENAL FAILURE [None]
